FAERS Safety Report 16074497 (Version 1)
Quarter: 2019Q1

REPORT INFORMATION
  Report Type: Spontaneous
  Country: US (occurrence: US)
  Receive Date: 20190314
  Receipt Date: 20190314
  Transmission Date: 20190418
  Serious: Yes (Other)
  Sender: FDA-Public Use
  Company Number: US-TEVA-2019-US-1023284

PATIENT
  Age: 33 Year
  Sex: Female

DRUGS (2)
  1. TRAZODONE [Suspect]
     Active Substance: TRAZODONE HYDROCHLORIDE
     Indication: INSOMNIA
     Dates: start: 20190301
  2. TRAZODONE [Suspect]
     Active Substance: TRAZODONE HYDROCHLORIDE
     Dates: start: 201802

REACTIONS (6)
  - Diarrhoea [Unknown]
  - Hypersensitivity [Unknown]
  - Agitation [Unknown]
  - Syncope [Unknown]
  - Nausea [Unknown]
  - Hypervigilance [Unknown]

NARRATIVE: CASE EVENT DATE: 201802
